FAERS Safety Report 19577374 (Version 4)
Quarter: 2021Q3

REPORT INFORMATION
  Report Type: Report from Study
  Country: US (occurrence: US)
  Receive Date: 20210719
  Receipt Date: 20210927
  Transmission Date: 20211014
  Serious: Yes (Other)
  Sender: FDA-Public Use
  Company Number: US-CLOVIS ONCOLOGY-CLO-2021-000660

PATIENT
  Age: 65 Year
  Sex: Female

DRUGS (2)
  1. RUBRACA [Suspect]
     Active Substance: RUCAPARIB CAMSYLATE
     Indication: MALIGNANT PERITONEAL NEOPLASM
     Dosage: 600 MILLIGRAM, BID
     Route: 048
     Dates: start: 20210416, end: 202105
  2. RUBRACA [Suspect]
     Active Substance: RUCAPARIB CAMSYLATE
     Dosage: 250 MILLIGRAM, BID
     Route: 048
     Dates: start: 20210614

REACTIONS (11)
  - Upper-airway cough syndrome [Unknown]
  - Dyspepsia [Not Recovered/Not Resolved]
  - Retching [Unknown]
  - Vomiting [Recovered/Resolved]
  - Blood magnesium decreased [Recovering/Resolving]
  - Blood count abnormal [Not Recovered/Not Resolved]
  - Dysphagia [Unknown]
  - Arthritis [Unknown]
  - Anaemia [Unknown]
  - Product dose omission issue [Unknown]
  - Adverse event [Unknown]

NARRATIVE: CASE EVENT DATE: 202104
